FAERS Safety Report 12496833 (Version 1)
Quarter: 2016Q2

REPORT INFORMATION
  Report Type: Spontaneous
  Country: US (occurrence: US)
  Receive Date: 20160624
  Receipt Date: 20160624
  Transmission Date: 20160815
  Serious: No
  Sender: FDA-Public Use
  Company Number: US-ENDO PHARMACEUTICALS INC.-2015-001555

PATIENT
  Sex: Female
  Weight: 81.72 kg

DRUGS (1)
  1. DOXAZOSIN MESYLATE TABLETS 4 MG [Suspect]
     Active Substance: DOXAZOSIN MESYLATE
     Indication: URETHRAL DILATATION
     Route: 065
     Dates: start: 2000

REACTIONS (2)
  - Product use issue [Not Recovered/Not Resolved]
  - Visual acuity reduced [Not Recovered/Not Resolved]

NARRATIVE: CASE EVENT DATE: 2000
